FAERS Safety Report 10082264 (Version 1)
Quarter: 2014Q2

REPORT INFORMATION
  Report Type: Spontaneous
  Country: US (occurrence: US)
  Receive Date: 20140416
  Receipt Date: 20140416
  Transmission Date: 20141212
  Serious: No
  Sender: FDA-Public Use
  Company Number: US-009507513-1403USA014545

PATIENT
  Sex: Female

DRUGS (2)
  1. CLARITIN REDITABS [Suspect]
     Indication: PRODUCT USED FOR UNKNOWN INDICATION
     Dosage: UNK, UNKNOWN
     Route: 048
  2. CLARITIN REDITABS [Suspect]
     Dosage: TOOK TWO IN ONE DAY
     Route: 048

REACTIONS (3)
  - Dry skin [Unknown]
  - Off label use [Unknown]
  - Overdose [Unknown]
